FAERS Safety Report 21887097 (Version 1)
Quarter: 2023Q1

REPORT INFORMATION
  Report Type: Spontaneous
  Country: JP (occurrence: JP)
  Receive Date: 20230119
  Receipt Date: 20230119
  Transmission Date: 20230418
  Serious: Yes (Hospitalization, Other)
  Sender: FDA-Public Use
  Company Number: JP-002147023-NVSJ2022JP275349

PATIENT
  Age: 90 Year
  Sex: Male

DRUGS (3)
  1. ENTRESTO [Suspect]
     Active Substance: SACUBITRIL\VALSARTAN
     Indication: Cardiac failure
     Dosage: 100 MG
     Route: 048
     Dates: start: 20220402
  2. ROXADUSTAT [Suspect]
     Active Substance: ROXADUSTAT
     Indication: Product used for unknown indication
     Dosage: 50 MG
     Route: 048
     Dates: start: 20220924, end: 20221127
  3. ROXADUSTAT [Suspect]
     Active Substance: ROXADUSTAT
     Dosage: 20 MG
     Route: 048
     Dates: start: 20221128, end: 20221227

REACTIONS (5)
  - Akinesia [Unknown]
  - Hypotension [Unknown]
  - Pulmonary embolism [Unknown]
  - Dementia [Unknown]
  - Hyperkalaemia [Unknown]

NARRATIVE: CASE EVENT DATE: 20221128
